FAERS Safety Report 24317031 (Version 1)
Quarter: 2024Q3

REPORT INFORMATION
  Report Type: Spontaneous
  Country: US (occurrence: US)
  Receive Date: 20240913
  Receipt Date: 20240913
  Transmission Date: 20241016
  Serious: No
  Sender: MYLAN
  Company Number: US-MYLANLABS-2024M1082757

PATIENT
  Sex: Female
  Weight: 63.05 kg

DRUGS (4)
  1. ESTRADIOL TRANSDERMAL SYSTEM [Suspect]
     Active Substance: ESTRADIOL
     Indication: Menopause
     Dosage: 0.05 MILLIGRAM, QD (TWICE WEEKLY)
     Route: 062
     Dates: start: 20240828, end: 20240904
  2. CALCIUM [Concomitant]
     Active Substance: CALCIUM
     Dosage: UNK
     Route: 065
  3. MAGNESIUM CITRATE [Concomitant]
     Active Substance: MAGNESIUM CITRATE
     Dosage: UNK
     Route: 065
  4. FISH OIL [Concomitant]
     Active Substance: FISH OIL
     Dosage: UNK
     Route: 065

REACTIONS (3)
  - Application site rash [Recovering/Resolving]
  - Application site erythema [Recovering/Resolving]
  - Application site pruritus [Recovering/Resolving]
